FAERS Safety Report 9929344 (Version 1)
Quarter: 2014Q1

REPORT INFORMATION
  Report Type: Spontaneous
  Country: US (occurrence: US)
  Receive Date: 20140227
  Receipt Date: 20140227
  Transmission Date: 20141002
  Serious: No
  Sender: FDA-Public Use
  Company Number: US-BAYER-2014-030700

PATIENT
  Age: 36 Year
  Sex: 0

DRUGS (1)
  1. GADAVIST [Suspect]
     Dosage: UNK UNK, ONCE
     Dates: start: 20131108, end: 20131108

REACTIONS (5)
  - Pruritus [None]
  - Urticaria [None]
  - Eye swelling [None]
  - Lip swelling [None]
  - Swollen tongue [None]
